FAERS Safety Report 16342677 (Version 9)
Quarter: 2020Q4

REPORT INFORMATION
  Report Type: Report from Study
  Country: US (occurrence: US)
  Receive Date: 20190522
  Receipt Date: 20201016
  Transmission Date: 20210113
  Serious: Yes (Other)
  Sender: FDA-Public Use
  Company Number: US-PFIZER INC-2019212087

PATIENT
  Age: 52 Year
  Sex: Female
  Weight: 85.5 kg

DRUGS (7)
  1. IBRANCE [Suspect]
     Active Substance: PALBOCICLIB
     Dosage: 75 MG CYCLIC (21 DAYS ON, THEN 14 DAYS OFF)
     Route: 048
     Dates: start: 20200702
  2. IBRANCE [Suspect]
     Active Substance: PALBOCICLIB
     Dosage: 75 MG, CYCLIC (21 DAYS ON, THEN 7 DAYS OFF)
     Route: 048
     Dates: start: 20190809
  3. IBRANCE [Suspect]
     Active Substance: PALBOCICLIB
     Dosage: 100 MG, CYCLIC (21 DAYS ON, THEN 7 DAYS OFF)
     Route: 048
     Dates: start: 20190424, end: 202003
  4. FASLODEX [Concomitant]
     Active Substance: FULVESTRANT
     Dosage: UNK
  5. IBRANCE [Suspect]
     Active Substance: PALBOCICLIB
     Indication: BREAST CANCER FEMALE
     Dosage: 125 MG, CYCLIC (21 DAYS ON/7 DAYS OFF)
     Route: 048
     Dates: start: 20190419
  6. LETROZOLE. [Concomitant]
     Active Substance: LETROZOLE
     Dosage: UNK
  7. ZOMETA [Concomitant]
     Active Substance: ZOLEDRONIC ACID
     Dosage: UNK

REACTIONS (8)
  - Rash [Not Recovered/Not Resolved]
  - Neuropathy peripheral [Recovering/Resolving]
  - Product dose omission issue [Unknown]
  - Neutropenia [Not Recovered/Not Resolved]
  - Blood count abnormal [Not Recovered/Not Resolved]
  - Dry skin [Recovering/Resolving]
  - White blood cell count decreased [Not Recovered/Not Resolved]
  - Acne [Not Recovered/Not Resolved]
